FAERS Safety Report 6771120-1 (Version None)
Quarter: 2010Q2

REPORT INFORMATION
  Report Type: 
  Country: None (occurrence: None)
  Receive Date: 20100616
  Receipt Date: 20100610
  Transmission Date: 20101027
  Serious: Yes (Other)
  Sender: FDA-Public Use
  Company Number: US-JNJFOC-20100603943

PATIENT
  Age: 27 Year
  Sex: Female

DRUGS (5)
  1. IBUPROFEN [Suspect]
     Indication: SUICIDE ATTEMPT
     Route: 065
  2. IBUPROFEN [Suspect]
     Indication: INTENTIONAL OVERDOSE
     Route: 065
  3. CHANTIX [Suspect]
     Indication: DRUG USE FOR UNKNOWN INDICATION
     Route: 065
  4. HERBAL NERVE TONIC LIQUID [Suspect]
     Indication: SUICIDE ATTEMPT
     Route: 065
  5. OTHER THERAPEUTIC PRODUCT [Suspect]
     Indication: SUICIDE ATTEMPT
     Route: 065

REACTIONS (2)
  - INTENTIONAL OVERDOSE [None]
  - SUICIDE ATTEMPT [None]
